FAERS Safety Report 24978593 (Version 1)
Quarter: 2025Q1

REPORT INFORMATION
  Report Type: Report from Study
  Country: US (occurrence: US)
  Receive Date: 20250218
  Receipt Date: 20250218
  Transmission Date: 20250409
  Serious: Yes (Hospitalization)
  Sender: AUROBINDO
  Company Number: US-AUROBINDO-AUR-APL-2025-008260

PATIENT
  Age: 61 Year
  Sex: Female

DRUGS (7)
  1. OLANZAPINE [Suspect]
     Active Substance: OLANZAPINE
     Indication: Major depression
     Route: 065
  2. OLANZAPINE [Suspect]
     Active Substance: OLANZAPINE
     Route: 065
  3. SERTRALINE [Suspect]
     Active Substance: SERTRALINE HYDROCHLORIDE
     Indication: Major depression
     Route: 065
  4. ALPRAZOLAM [Suspect]
     Active Substance: ALPRAZOLAM
     Indication: Major depression
     Route: 065
  5. ESCITALOPRAM [Suspect]
     Active Substance: ESCITALOPRAM OXALATE
     Indication: Major depression
     Route: 065
  6. LORAZEPAM [Concomitant]
     Active Substance: LORAZEPAM
     Indication: Catatonia
     Dosage: 2.5 MILLIGRAM, TWO TIMES A DAY
     Route: 065
  7. LORAZEPAM [Concomitant]
     Active Substance: LORAZEPAM
     Dosage: 1.5 MILLIGRAM, TWO TIMES A DAY
     Route: 065

REACTIONS (1)
  - Drug ineffective [Unknown]
